FAERS Safety Report 23722480 (Version 8)
Quarter: 2024Q4

REPORT INFORMATION
  Report Type: Report from Study
  Country: CA (occurrence: CA)
  Receive Date: 20240409
  Receipt Date: 20241121
  Transmission Date: 20250115
  Serious: Yes (Hospitalization, Other)
  Sender: JOHNSON AND JOHNSON
  Company Number: CA-JNJFOC-20240413283

PATIENT
  Age: 15 Year
  Sex: Female
  Weight: 69 kg

DRUGS (6)
  1. REMICADE [Suspect]
     Active Substance: INFLIXIMAB
     Indication: Crohn^s disease
     Route: 041
     Dates: start: 20190206
  2. REMICADE [Suspect]
     Active Substance: INFLIXIMAB
     Dosage: INFUSION NUMBER 48
     Route: 041
     Dates: start: 20240403
  3. REMICADE [Suspect]
     Active Substance: INFLIXIMAB
     Dosage: EXPIRY:30-SEP-2026
     Route: 041
  4. REMICADE [Suspect]
     Active Substance: INFLIXIMAB
     Dosage: EXPIRY:30-SEP-2026
     Route: 041
  5. REMICADE [Suspect]
     Active Substance: INFLIXIMAB
     Route: 041
  6. REMICADE [Suspect]
     Active Substance: INFLIXIMAB
     Route: 041

REACTIONS (7)
  - Infectious mononucleosis [Recovering/Resolving]
  - Pertussis [Recovering/Resolving]
  - Crohn^s disease [Not Recovered/Not Resolved]
  - Ovarian germ cell teratoma benign [Unknown]
  - Malaise [Not Recovered/Not Resolved]
  - Drug ineffective [Unknown]
  - Off label use [Unknown]

NARRATIVE: CASE EVENT DATE: 20240303
